FAERS Safety Report 7728583-4 (Version None)
Quarter: 2011Q3

REPORT INFORMATION
  Report Type: 
  Country: None (occurrence: None)
  Receive Date: 20110831
  Receipt Date: 20110831
  Transmission Date: 20111222
  Serious: Yes (Other)
  Sender: FDA-Public Use
  Company Number: None

PATIENT
  Sex: Male
  Weight: 68 kg

DRUGS (1)
  1. HEPARIN SODIUM [Suspect]
     Indication: CARDIAC ABLATION
     Dosage: 6,000 UNITS ONCE I.V PUSH
     Route: 042
     Dates: start: 20110830

REACTIONS (2)
  - COAGULATION TIME SHORTENED [None]
  - PRODUCT QUALITY ISSUE [None]
